FAERS Safety Report 22534456 (Version 1)
Quarter: 2023Q2

REPORT INFORMATION
  Report Type: Report from Study
  Country: US (occurrence: US)
  Receive Date: 20230608
  Receipt Date: 20230608
  Transmission Date: 20230722
  Serious: Yes (Other)
  Sender: FDA-Public Use
  Company Number: US-002147023-NVSC2023US126281

PATIENT
  Sex: Female

DRUGS (1)
  1. KISQALI [Suspect]
     Active Substance: RIBOCICLIB
     Indication: Hormone receptor positive breast cancer
     Dosage: UNK
     Route: 065

REACTIONS (3)
  - Neutropenia [Unknown]
  - Blood disorder [Unknown]
  - Fatigue [Unknown]
